FAERS Safety Report 7568266-7 (Version None)
Quarter: 2011Q2

REPORT INFORMATION
  Report Type: 
  Country: None (occurrence: None)
  Receive Date: 20110623
  Receipt Date: 20110204
  Transmission Date: 20111010
  Serious: No
  Sender: FDA-Public Use
  Company Number: US-ROCHE-761590

PATIENT
  Sex: Male

DRUGS (3)
  1. CEPHALEXIN [Concomitant]
     Dosage: DOSE: 500 MG EVERY 12 HOUR
     Dates: start: 20110201, end: 20110203
  2. TAMIFLU [Suspect]
     Dosage: TWO 3.75 TEASPOONFUL DOSE
     Route: 048
     Dates: start: 20110202, end: 20110202
  3. TAMIFLU [Suspect]
     Indication: INFLUENZA
     Dosage: STRENGTH: 12 MG/ML, ONE 3.75 TEASPOONFUL DOSE
     Route: 048
     Dates: start: 20110201, end: 20110201

REACTIONS (3)
  - VOMITING [None]
  - DRUG ADMINISTRATION ERROR [None]
  - NAUSEA [None]
